FAERS Safety Report 10572135 (Version 1)
Quarter: 2014Q4

REPORT INFORMATION
  Report Type: Spontaneous
  Country: DE (occurrence: DE)
  Receive Date: 20141107
  Receipt Date: 20141107
  Transmission Date: 20150529
  Serious: Yes (Other)
  Sender: FDA-Public Use
  Company Number: DE-ASTRAZENECA-2014SE83508

PATIENT
  Age: 82 Year
  Sex: Female

DRUGS (23)
  1. SEROQUEL [Suspect]
     Active Substance: QUETIAPINE FUMARATE
     Route: 048
     Dates: start: 20140808, end: 20140812
  2. SIMVASTATIN. [Concomitant]
     Active Substance: SIMVASTATIN
     Route: 048
  3. PIPAMPERONE [Concomitant]
     Active Substance: PIPAMPERONE
     Route: 048
     Dates: start: 20140818
  4. BISOPROLOL [Concomitant]
     Active Substance: BISOPROLOL
     Route: 048
  5. SEROQUEL [Suspect]
     Active Substance: QUETIAPINE FUMARATE
     Route: 048
     Dates: start: 20140725, end: 20140728
  6. L-THYROXIN [Suspect]
     Active Substance: LEVOTHYROXINE SODIUM
     Route: 048
     Dates: start: 20140802
  7. MAGNESIUM [Concomitant]
     Active Substance: MAGNESIUM
     Route: 048
     Dates: start: 20140726, end: 20140904
  8. SEROQUEL [Suspect]
     Active Substance: QUETIAPINE FUMARATE
     Route: 048
     Dates: start: 20140729, end: 20140807
  9. TREVILOR RETARD [Suspect]
     Active Substance: VENLAFAXINE HYDROCHLORIDE
     Route: 048
     Dates: start: 20140801, end: 20140807
  10. AMLODIPINE [Concomitant]
     Active Substance: AMLODIPINE BESYLATE
     Route: 048
  11. L-THYROXIN [Suspect]
     Active Substance: LEVOTHYROXINE SODIUM
     Route: 048
     Dates: end: 20140725
  12. PIPAMPERONE [Concomitant]
     Active Substance: PIPAMPERONE
     Route: 048
     Dates: end: 20140731
  13. RAMIPRIL. [Concomitant]
     Active Substance: RAMIPRIL
     Route: 048
  14. ASPIRIN. [Concomitant]
     Active Substance: ASPIRIN
     Route: 048
  15. SEROQUEL [Suspect]
     Active Substance: QUETIAPINE FUMARATE
     Dosage: 125 MG DAILY, PARTIALLY AS PROLONG
     Route: 048
     Dates: start: 20140813
  16. SERTRALINE [Concomitant]
     Active Substance: SERTRALINE HYDROCHLORIDE
     Route: 048
     Dates: end: 20140731
  17. ASPIRIN. [Concomitant]
     Active Substance: ASPIRIN
     Route: 048
     Dates: end: 20140803
  18. PIPAMPERONE [Concomitant]
     Active Substance: PIPAMPERONE
     Route: 048
     Dates: start: 20140801, end: 20140817
  19. OTHER SPECIFIC MEDICATION (CRANBERRY CAPSULES) [Concomitant]
     Route: 048
     Dates: end: 20140819
  20. MIRTAZAPINE. [Concomitant]
     Active Substance: MIRTAZAPINE
     Route: 048
  21. SEROQUEL [Suspect]
     Active Substance: QUETIAPINE FUMARATE
     Dosage: 125 MG DAILY, PARTIALLY AS PROLONG
     Route: 048
     Dates: start: 20140813
  22. L-THYROXIN [Suspect]
     Active Substance: LEVOTHYROXINE SODIUM
     Route: 048
     Dates: start: 20140726, end: 20140801
  23. SERTRALINE [Concomitant]
     Active Substance: SERTRALINE HYDROCHLORIDE
     Route: 048
     Dates: start: 20140801

REACTIONS (1)
  - Alopecia [Recovered/Resolved]

NARRATIVE: CASE EVENT DATE: 20140802
